FAERS Safety Report 14202025 (Version 1)
Quarter: 2017Q4

REPORT INFORMATION
  Report Type: Report from Study
  Country: US (occurrence: US)
  Receive Date: 20171117
  Receipt Date: 20171117
  Transmission Date: 20180321
  Serious: Yes (Other)
  Sender: FDA-Public Use
  Company Number: US-GILEAD-2017-0304671

PATIENT
  Age: 78 Year
  Sex: Male

DRUGS (2)
  1. AMBRISENTAN [Suspect]
     Active Substance: AMBRISENTAN
     Indication: PRODUCT USED FOR UNKNOWN INDICATION
     Dosage: 10 MG, QD
     Route: 065
     Dates: start: 20170728
  2. REVATIO [Concomitant]
     Active Substance: SILDENAFIL CITRATE

REACTIONS (13)
  - Dizziness [Unknown]
  - Asthenia [Unknown]
  - Oedema [Unknown]
  - Unevaluable event [Unknown]
  - Intentional dose omission [Unknown]
  - Dyspnoea [Unknown]
  - Fatigue [Unknown]
  - Fall [Unknown]
  - Dysstasia [Recovered/Resolved]
  - Musculoskeletal disorder [Unknown]
  - Weight decreased [Unknown]
  - Loss of consciousness [Unknown]
  - Contusion [Unknown]

NARRATIVE: CASE EVENT DATE: 20171102
